FAERS Safety Report 6189803-3 (Version None)
Quarter: 2009Q2

REPORT INFORMATION
  Report Type: 
  Country: None (occurrence: None)
  Receive Date: 20090512
  Receipt Date: 20090512
  Transmission Date: 20091009
  Serious: Yes (Hospitalization)
  Sender: FDA-Public Use
  Company Number: None

PATIENT
  Age: 72 Year
  Sex: Female
  Weight: 33.1126 kg

DRUGS (6)
  1. INTEGRILIN [Suspect]
     Indication: PERCUTANEOUS CORONARY INTERVENTION
     Dosage: 180 MCG KG Q 10 MIN X 2 IV BOLUS
     Route: 040
     Dates: start: 20090506, end: 20090506
  2. INTEGRILIN [Suspect]
     Dosage: 2 MCG/KG/MIN IV DRIP
     Route: 041
  3. ASPIRIN [Concomitant]
  4. CLOPIDOGREL [Concomitant]
  5. BIVALIRUDIN [Concomitant]
  6. UNFRACTIONATED HEPARIN [Concomitant]

REACTIONS (3)
  - ARTERIAL HAEMORRHAGE [None]
  - GASTROINTESTINAL HAEMORRHAGE [None]
  - THROMBOCYTOPENIA [None]
